FAERS Safety Report 9797879 (Version 5)
Quarter: 2014Q1

REPORT INFORMATION
  Report Type: Spontaneous
  Country: JP (occurrence: JP)
  Receive Date: 20140106
  Receipt Date: 20140305
  Transmission Date: 20141002
  Serious: Yes (Death, Life-Threatening, Disabling, Other)
  Sender: FDA-Public Use
  Company Number: JP-UCBSA-107670

PATIENT
  Age: 77 Year
  Sex: Female

DRUGS (16)
  1. NEUPRO [Suspect]
     Indication: PARKINSON^S DISEASE
     Route: 061
     Dates: start: 201307, end: 201308
  2. NEUPRO [Suspect]
     Indication: PARKINSON^S DISEASE
     Route: 061
     Dates: start: 201308, end: 20140120
  3. GLUCOSE [Concomitant]
     Dosage: UNKNOWN
     Dates: start: 20131221
  4. MAINTENANCE MEDIUM [Concomitant]
     Dates: start: 20131217, end: 20131219
  5. SULBACTAM SODIUM_AMPICILLIN SODIUM [Concomitant]
     Dates: start: 20131217
  6. APOMORPHINE HYDROCHLORIDE HYDRATE [Concomitant]
  7. APOMORPHINE HYDROCHLORIDE HYDRATE [Concomitant]
     Dosage: DAILY DOSE: 6 MG
  8. LEVODOPA_CARBIDOPA HYDRATE [Concomitant]
     Dosage: DAILY DOSE: 625 MG
     Dates: start: 201304
  9. DONEPEZIL HYDROCHLORIDE [Concomitant]
     Dosage: DAILY DOSE: 5 MG
     Dates: start: 201304
  10. LANSOPRAZOLE [Concomitant]
     Dosage: DAILY DOSE: 30 MG
  11. POLAPREZINC [Concomitant]
     Dosage: DAILY DOSE: 150 MG
  12. LACTATED RINGER^S SOLUTION WITH MALTOSE [Concomitant]
     Dates: start: 20131217
  13. RANITIDINE HYDROCHLORIDE [Concomitant]
     Dates: start: 20131219
  14. LACTATED RINGER^S SOLUTION WITH MALTOSE [Concomitant]
     Dates: start: 20131217
  15. MEROPENEM HYDRATE [Concomitant]
     Dates: start: 20131221
  16. MIXED AMINO ACID_CARBOHYDRATE_ELECTROLYTE_VITAMIN COMBINE [Concomitant]
     Dates: start: 20131221

REACTIONS (5)
  - Hypoglycaemic encephalopathy [Fatal]
  - Blood glucose decreased [Recovered/Resolved]
  - Decerebrate posture [Unknown]
  - Coma [Unknown]
  - Dyskinesia [Unknown]
